FAERS Safety Report 7569045-7 (Version None)
Quarter: 2011Q2

REPORT INFORMATION
  Report Type: 
  Country: None (occurrence: None)
  Receive Date: 20110623
  Receipt Date: 20110616
  Transmission Date: 20111010
  Serious: Yes (Other)
  Sender: FDA-Public Use
  Company Number: US-PFIZER INC-2011133693

PATIENT
  Sex: Female

DRUGS (1)
  1. DILANTIN-125 [Suspect]
     Dosage: UNK

REACTIONS (6)
  - DYSSTASIA [None]
  - SOMNOLENCE [None]
  - WRIST FRACTURE [None]
  - FALL [None]
  - VOMITING [None]
  - OVERDOSE [None]
